FAERS Safety Report 19483827 (Version 1)
Quarter: 2021Q3

REPORT INFORMATION
  Report Type: Spontaneous
  Country: NL (occurrence: NL)
  Receive Date: 20210701
  Receipt Date: 20210701
  Transmission Date: 20211014
  Serious: Yes (Other)
  Sender: FDA-Public Use
  Company Number: NL-BAUSCH-BL-2021-021659

PATIENT
  Age: 32 Year
  Sex: Male
  Weight: 119 kg

DRUGS (3)
  1. METFORMINE HYDROCHLORIDE [Suspect]
     Active Substance: METFORMIN HYDROCHLORIDE
     Indication: PRODUCT USED FOR UNKNOWN INDICATION
     Route: 065
     Dates: start: 20210419
  2. SIMVASTATINE [Suspect]
     Active Substance: SIMVASTATIN
     Indication: PRODUCT USED FOR UNKNOWN INDICATION
     Route: 065
     Dates: start: 20210419
  3. JANSSEN COVID?19 VACCINE [Suspect]
     Active Substance: AD26.COV2.S
     Indication: COVID-19 IMMUNISATION
     Dosage: 0.5 ML (QUANTITY)
     Route: 065
     Dates: start: 20210519

REACTIONS (11)
  - Headache [Recovered/Resolved]
  - Injection site inflammation [Recovered/Resolved]
  - Pyrexia [Recovered/Resolved]
  - Arthralgia [Recovered/Resolved]
  - Injection site warmth [Recovered/Resolved]
  - Myalgia [Recovered/Resolved]
  - Fatigue [Recovered/Resolved]
  - Nausea [Recovered/Resolved]
  - Chills [Recovered/Resolved]
  - Malaise [Recovered/Resolved]
  - Injection site pain [Recovered/Resolved]

NARRATIVE: CASE EVENT DATE: 20210520
